FAERS Safety Report 8550735-4 (Version None)
Quarter: 2012Q3

REPORT INFORMATION
  Report Type: 
  Country: None (occurrence: None)
  Receive Date: 20120723
  Receipt Date: 20120723
  Transmission Date: 20120928
  Serious: Yes (Other)
  Sender: FDA-Public Use
  Company Number: None

PATIENT
  Age: 11 Year
  Sex: Female
  Weight: 29.4 kg

DRUGS (2)
  1. TRANSDERM SCOP [Suspect]
     Indication: VOMITING
     Dosage: 1 PATCH 1.5 MG Q72 HOURS TRANSDERMAL
     Route: 062
     Dates: start: 20120517, end: 20120713
  2. TRANSDERM SCOP [Suspect]
     Indication: NAUSEA
     Dosage: 1 PATCH 1.5 MG Q72 HOURS TRANSDERMAL
     Route: 062
     Dates: start: 20120517, end: 20120713

REACTIONS (4)
  - HEAD INJURY [None]
  - PUPIL FIXED [None]
  - FALL [None]
  - DYSARTHRIA [None]
